FAERS Safety Report 8052646-X (Version None)
Quarter: 2012Q1

REPORT INFORMATION
  Report Type: 
  Country: None (occurrence: None)
  Receive Date: 20120118
  Receipt Date: 20120112
  Transmission Date: 20120608
  Serious: Yes (Hospitalization)
  Sender: FDA-Public Use
  Company Number: CA-AMGEN-CANCT2012002497

PATIENT
  Age: 64 Year
  Sex: Male

DRUGS (6)
  1. ETANERCEPT [Suspect]
     Indication: RHEUMATOID ARTHRITIS
     Dosage: 50 MG, QWK
     Route: 058
     Dates: start: 20100708
  2. METHOTREXATE [Suspect]
     Indication: RHEUMATOID ARTHRITIS
     Dosage: 20 MG, QWK
     Route: 058
     Dates: start: 20090930
  3. ADVAIR DISKUS 100/50 [Suspect]
  4. SPIRIVA [Suspect]
  5. PREDNISONE TAB [Suspect]
     Dosage: 40 MG, QD
     Route: 048
  6. VENTOLIN [Suspect]

REACTIONS (4)
  - DYSPNOEA [None]
  - EMPYEMA [None]
  - PNEUMONIA [None]
  - LUNG ABSCESS [None]
